FAERS Safety Report 24801557 (Version 1)
Quarter: 2025Q1

REPORT INFORMATION
  Report Type: Spontaneous
  Country: US (occurrence: US)
  Receive Date: 20250102
  Receipt Date: 20250102
  Transmission Date: 20250409
  Serious: No
  Sender: PFIZER
  Company Number: US-PFIZER INC-PV202300175689

PATIENT
  Age: 76 Year
  Sex: Female
  Weight: 85.73 kg

DRUGS (1)
  1. ALDACTONE [Suspect]
     Active Substance: SPIRONOLACTONE
     Indication: Blood pressure increased

REACTIONS (4)
  - Drug ineffective [Unknown]
  - Malaise [Unknown]
  - Poor quality product administered [Unknown]
  - Product physical issue [Unknown]
